FAERS Safety Report 4368221-4 (Version None)
Quarter: 2004Q2

REPORT INFORMATION
  Report Type: 
  Country: None (occurrence: None)
  Receive Date: 20040527
  Receipt Date: 20040511
  Transmission Date: 20050107
  Serious: Yes (Life-Threatening)
  Sender: FDA-Public Use
  Company Number: A01200402185

PATIENT
  Age: 70 Year
  Sex: Male

DRUGS (3)
  1. ELOXATIN [Suspect]
     Dosage: INTRAVENOUS NOS
     Route: 042
     Dates: start: 20040511, end: 20040511
  2. LEUCOVORIN CALCIUM [Concomitant]
  3. IRINOTECAN (IRINOTECAN) [Concomitant]

REACTIONS (7)
  - CIRCULATORY COLLAPSE [None]
  - CYANOSIS [None]
  - FLUSHING [None]
  - NAUSEA [None]
  - PULMONARY EMBOLISM [None]
  - RETCHING [None]
  - VOMITING [None]
